FAERS Safety Report 9828354 (Version 2)
Quarter: 2014Q1

REPORT INFORMATION
  Report Type: Spontaneous
  Country: US (occurrence: US)
  Receive Date: 20140117
  Receipt Date: 20140124
  Transmission Date: 20141002
  Serious: Yes (Hospitalization)
  Sender: FDA-Public Use
  Company Number: US-GLAXOSMITHKLINE-A1057138A

PATIENT
  Sex: Female

DRUGS (3)
  1. FLOLAN [Suspect]
     Indication: PULMONARY ARTERIAL HYPERTENSION
     Dosage: 32.3NGKM CONTINUOUS
     Route: 042
     Dates: start: 20010719, end: 20140116
  2. WARFARIN [Concomitant]
  3. LETAIRIS [Concomitant]

REACTIONS (5)
  - Asthma [Unknown]
  - Wheezing [Unknown]
  - Pain in extremity [Unknown]
  - Flushing [Unknown]
  - Pain in jaw [Unknown]
